FAERS Safety Report 22265686 (Version 1)
Quarter: 2023Q2

REPORT INFORMATION
  Report Type: Spontaneous
  Country: US (occurrence: None)
  Receive Date: 20230426
  Receipt Date: 20230426
  Transmission Date: 20230722
  Serious: No
  Sender: FDA-Public Use
  Company Number: None

PATIENT
  Sex: Male

DRUGS (1)
  1. NORDITROPIN [Suspect]
     Active Substance: SOMATROPIN
     Indication: Hypopituitarism
     Dosage: OTHER STRENGTH : 15MG/1.5M;?OTHER QUANTITY : 1.8MG;?OTHER FREQUENCY : 6 TIMES WKLY;?
     Route: 058
     Dates: start: 202205

REACTIONS (2)
  - Pericardial mass [None]
  - Chest pain [None]
